FAERS Safety Report 4396175-3 (Version None)
Quarter: 2004Q3

REPORT INFORMATION
  Report Type: 
  Country: None (occurrence: None)
  Receive Date: 20040713
  Receipt Date: 20040706
  Transmission Date: 20050211
  Serious: Yes (Death, Hospitalization, Other)
  Sender: FDA-Public Use
  Company Number: PHBS2004US09148

PATIENT
  Age: 59 Year
  Sex: Male

DRUGS (9)
  1. CYCLOSPORINE [Suspect]
     Indication: BONE MARROW TRANSPLANT
     Route: 065
  2. CYCLOPHOSPHAMIDE [Concomitant]
     Indication: BONE MARROW CONDITIONING REGIMEN
     Dosage: 120 MG/KG/D
  3. CYCLOPHOSPHAMIDE [Concomitant]
     Dosage: 120 MG/KG/D
     Dates: start: 19960101
  4. METHOTREXATE [Suspect]
     Indication: BONE MARROW TRANSPLANT
  5. BUSULFAN [Concomitant]
     Dosage: 16 MG/KG/D
     Dates: start: 19960101
  6. PREDNISONE [Concomitant]
     Indication: STEM CELL TRANSPLANT
  7. FK 506 [Concomitant]
     Indication: GRAFT VERSUS HOST DISEASE
  8. GANCICLOVIR [Concomitant]
     Indication: CYTOMEGALOVIRUS OESOPHAGITIS
  9. RADIOTHERAPY [Concomitant]

REACTIONS (17)
  - ABDOMINAL PAIN [None]
  - ANOREXIA [None]
  - BACK PAIN [None]
  - CYTOMEGALOVIRUS OESOPHAGITIS [None]
  - DISEASE RECURRENCE [None]
  - FATIGUE [None]
  - GRAFT VERSUS HOST DISEASE [None]
  - HAEMATOCRIT DECREASED [None]
  - LIPOSARCOMA [None]
  - METASTASES TO LIVER [None]
  - MYELODYSPLASTIC SYNDROME [None]
  - NIGHT SWEATS [None]
  - PANCYTOPENIA [None]
  - PLATELET COUNT DECREASED [None]
  - STEM CELL TRANSPLANT [None]
  - THROMBOCYTOPENIA [None]
  - WEIGHT DECREASED [None]
